FAERS Safety Report 10355384 (Version 1)
Quarter: 2014Q3

REPORT INFORMATION
  Report Type: Spontaneous
  Country: US (occurrence: US)
  Receive Date: 20140731
  Receipt Date: 20140731
  Transmission Date: 20150326
  Serious: No
  Sender: FDA-Public Use
  Company Number: US-TARO-2013P1016815

PATIENT
  Sex: Male
  Weight: 111.13 kg

DRUGS (8)
  1. CLOBETASOL PROPIONATE (MORTON GROVE PHARMACEUTICALS) [Suspect]
     Active Substance: CLOBETASOL PROPIONATE
     Dosage: PRN
     Route: 061
  2. LATUDA [Concomitant]
     Active Substance: LURASIDONE HYDROCHLORIDE
     Dosage: 40 MG
  3. TRIAMCINOLONE [Concomitant]
     Active Substance: TRIAMCINOLONE
     Route: 061
  4. DEPAKOTE [Concomitant]
     Active Substance: DIVALPROEX SODIUM
  5. KLONOPIN [Concomitant]
     Active Substance: CLONAZEPAM
  6. FLUOCINONIDE CREAM USP 0.05% [Suspect]
     Active Substance: FLUOCINONIDE
     Indication: PRURITUS
     Dosage: HS
     Route: 061
     Dates: start: 201307
  7. CYMBALTA [Concomitant]
     Active Substance: DULOXETINE HYDROCHLORIDE
     Dosage: 60 MG
  8. WELLBUTRIN [Concomitant]
     Active Substance: BUPROPION HYDROCHLORIDE

REACTIONS (1)
  - Application site pain [Recovered/Resolved]

NARRATIVE: CASE EVENT DATE: 2013
